FAERS Safety Report 20245296 (Version 1)
Quarter: 2021Q4

REPORT INFORMATION
  Report Type: Spontaneous
  Country: JP (occurrence: JP)
  Receive Date: 20211229
  Receipt Date: 20211229
  Transmission Date: 20220304
  Serious: Yes (Other)
  Sender: FDA-Public Use
  Company Number: JP-DSJP-DSJ-2021-143074

PATIENT

DRUGS (10)
  1. DENOSUMAB [Suspect]
     Active Substance: DENOSUMAB
     Indication: Metastatic neoplasm
     Dosage: UNK
     Route: 065
  2. PANITUMUMAB [Suspect]
     Active Substance: PANITUMUMAB
     Indication: Colon cancer
     Dosage: 6 MILLIGRAM/KILOGRAM
     Route: 065
  3. PANITUMUMAB [Suspect]
     Active Substance: PANITUMUMAB
     Indication: Metastatic neoplasm
     Dosage: UNK
     Route: 065
  4. OXALIPLATIN [Suspect]
     Active Substance: OXALIPLATIN
     Indication: Colon cancer
     Dosage: UNK
     Route: 065
  5. OXALIPLATIN [Suspect]
     Active Substance: OXALIPLATIN
     Indication: Metastatic neoplasm
     Dosage: 85 MILLIGRAM/SQ. METER
     Route: 065
  6. OXALIPLATIN [Suspect]
     Active Substance: OXALIPLATIN
     Dosage: UNK
     Route: 065
  7. LEVOLEUCOVORIN CALCIUM [Concomitant]
     Active Substance: LEVOLEUCOVORIN CALCIUM
     Indication: Colon cancer
     Dosage: 200 MILLIGRAM/SQ. METER
     Route: 065
  8. LEVOLEUCOVORIN CALCIUM [Concomitant]
     Active Substance: LEVOLEUCOVORIN CALCIUM
     Indication: Metastatic neoplasm
     Dosage: UNK
  9. FLUOROURACIL [Concomitant]
     Active Substance: FLUOROURACIL
     Indication: Colon cancer
     Dosage: 400 MILLIGRAM/SQ. METER
     Route: 040
  10. FLUOROURACIL [Concomitant]
     Active Substance: FLUOROURACIL
     Indication: Metastatic neoplasm
     Dosage: 2400 MILLIGRAM/SQ. METER
     Route: 041

REACTIONS (4)
  - Neuropathy peripheral [Unknown]
  - Malaise [Unknown]
  - Eczema [Unknown]
  - Nausea [Unknown]
